FAERS Safety Report 11453898 (Version 9)
Quarter: 2016Q4

REPORT INFORMATION
  Report Type: Report from Study
  Country: BR (occurrence: BR)
  Receive Date: 20150903
  Receipt Date: 20161128
  Transmission Date: 20170206
  Serious: Yes (Hospitalization, Other)
  Sender: FDA-Public Use
  Company Number: PHHY2015BR105979

PATIENT
  Sex: Female
  Weight: 53 kg

DRUGS (3)
  1. DIPYRONE [Concomitant]
     Active Substance: DIPYRONE
     Indication: BONE PAIN
     Dosage: 3 DF, QD
     Route: 048
  2. AMITRIPTYLINE [Concomitant]
     Active Substance: AMITRIPTYLINE
     Indication: MIGRAINE
     Dosage: 2 DF, QD
     Route: 048
  3. EXJADE [Suspect]
     Active Substance: DEFERASIROX
     Indication: SICKLE CELL ANAEMIA
     Dosage: 30 MG/KG, QD (1500 MG: 3 DF OF 500 MG)
     Route: 048
     Dates: start: 2014

REACTIONS (17)
  - Irritability [Not Recovered/Not Resolved]
  - Osteonecrosis [Not Recovered/Not Resolved]
  - Oedema [Unknown]
  - Sinusitis [Unknown]
  - Malaise [Unknown]
  - Pain [Unknown]
  - Haemoglobin decreased [Unknown]
  - Contusion [Unknown]
  - Nasopharyngitis [Unknown]
  - Diarrhoea [Unknown]
  - Abasia [Not Recovered/Not Resolved]
  - Nausea [Unknown]
  - Musculoskeletal chest pain [Recovering/Resolving]
  - Abdominal discomfort [Not Recovered/Not Resolved]
  - Sickle cell anaemia with crisis [Unknown]
  - Decreased immune responsiveness [Unknown]
  - Weight decreased [Unknown]
